FAERS Safety Report 23422514 (Version 1)
Quarter: 2024Q1

REPORT INFORMATION
  Report Type: Spontaneous
  Country: IT (occurrence: None)
  Receive Date: 20240119
  Receipt Date: 20240119
  Transmission Date: 20240410
  Serious: Yes (Other)
  Sender: FDA-Public Use
  Company Number: 2024A010732

PATIENT
  Sex: Female

DRUGS (2)
  1. DAPAGLIFLOZIN [Interacting]
     Active Substance: DAPAGLIFLOZIN
     Indication: Type 2 diabetes mellitus
     Route: 048
  2. ETHYLMORPHINE HYDROCHLORIDE\HERBALS [Interacting]
     Active Substance: ETHYLMORPHINE HYDROCHLORIDE\HERBALS

REACTIONS (2)
  - Diabetic metabolic decompensation [Recovered/Resolved]
  - Drug interaction [Unknown]
